FAERS Safety Report 11687321 (Version 2)
Quarter: 2015Q4

REPORT INFORMATION
  Report Type: Report from Study
  Country: DE (occurrence: DE)
  Receive Date: 20151030
  Receipt Date: 20151229
  Transmission Date: 20160304
  Serious: Yes (Hospitalization)
  Sender: FDA-Public Use
  Company Number: PHHY2015DE101354

PATIENT
  Sex: Female
  Weight: 84 kg

DRUGS (18)
  1. LACTULOSE. [Concomitant]
     Active Substance: LACTULOSE
     Indication: CONSTIPATION
     Dosage: 10 MG, QD
     Route: 048
     Dates: start: 20150101
  2. LUCENTIS [Suspect]
     Active Substance: RANIBIZUMAB
     Indication: DIABETIC RETINAL OEDEMA
     Dosage: (3X LEFT EYE)
     Route: 031
     Dates: start: 201109
  3. PANTOZOL [Concomitant]
     Active Substance: PANTOPRAZOLE SODIUM
     Indication: GASTRIC DISORDER
     Dosage: 20 MG, QD
     Route: 065
     Dates: start: 20150101
  4. ACTRAPID//INSULIN HUMAN [Concomitant]
     Indication: DIABETES MELLITUS
     Dosage: 20 IU, QD
     Route: 058
     Dates: start: 20150101
  5. AMLODIPINE [Concomitant]
     Active Substance: AMLODIPINE BESYLATE
     Indication: PRODUCT USED FOR UNKNOWN INDICATION
     Dosage: 5 MG, QD
     Route: 065
     Dates: start: 20150101
  6. EUTHYROX [Concomitant]
     Active Substance: LEVOTHYROXINE SODIUM
     Indication: HYPOTHYROIDISM
     Dosage: 0.025 MG, QD
     Route: 048
     Dates: start: 20150914
  7. EUGALAC [Concomitant]
     Indication: CONSTIPATION
     Dosage: 30 MG, QD
     Route: 065
     Dates: start: 20150101
  8. LUCENTIS [Suspect]
     Active Substance: RANIBIZUMAB
     Dosage: (1X RIGHT EYE)
     Route: 031
     Dates: start: 201506
  9. LUCENTIS [Suspect]
     Active Substance: RANIBIZUMAB
     Dosage: 1X
     Route: 031
     Dates: start: 20150721, end: 20150721
  10. DEKRISTOL [Concomitant]
     Active Substance: CHOLECALCIFEROL
     Indication: CALCIUM DEFICIENCY
     Dosage: 1500 OT, UNK
     Route: 065
     Dates: start: 20150101
  11. MAGNESIUM [Concomitant]
     Active Substance: MAGNESIUM
     Indication: MUSCLE SPASMS
     Dosage: 300 MG, QD
     Route: 065
     Dates: start: 20150101
  12. LUCENTIS [Suspect]
     Active Substance: RANIBIZUMAB
     Dosage: (1X RIGHT EYE)
     Route: 031
     Dates: start: 201507
  13. OXAZEPAM. [Suspect]
     Active Substance: OXAZEPAM
     Indication: PRODUCT USED FOR UNKNOWN INDICATION
     Dosage: UNK
     Route: 065
  14. OSVAREN [Concomitant]
     Active Substance: CALCIUM ACETATE\MAGNESIUM CARBONATE
     Indication: OSTEOPOROSIS
     Dosage: 7 MG, QD
     Route: 065
     Dates: start: 20150101
  15. GABAPENTIN. [Concomitant]
     Active Substance: GABAPENTIN
     Indication: NEUROPATHY PERIPHERAL
     Dosage: 900 MG, QD
     Route: 048
     Dates: start: 20150101
  16. MIRTAZAPINE. [Concomitant]
     Active Substance: MIRTAZAPINE
     Indication: DEPRESSION
     Dosage: 15 MG, QD
     Route: 065
     Dates: start: 20150101
  17. LIMPTAR [Concomitant]
     Active Substance: AMINOPHYLLINE\QUININE SULFATE
     Indication: MUSCLE SPASMS
     Dosage: 300 MG, QD
     Route: 065
     Dates: start: 20150101
  18. LUCENTIS [Suspect]
     Active Substance: RANIBIZUMAB
     Indication: VISUAL IMPAIRMENT
     Dosage: (3X LEFT EYE)
     Route: 031
     Dates: start: 201107

REACTIONS (6)
  - Restlessness [Unknown]
  - Loss of consciousness [Recovered/Resolved]
  - Renal failure [Unknown]
  - Respiratory failure [Unknown]
  - Gastrointestinal disorder [Unknown]
  - Drug withdrawal syndrome [Recovered/Resolved]

NARRATIVE: CASE EVENT DATE: 20150811
